FAERS Safety Report 6803497-2 (Version None)
Quarter: 2010Q2

REPORT INFORMATION
  Report Type: 
  Country: None (occurrence: None)
  Receive Date: 20100628
  Receipt Date: 20100623
  Transmission Date: 20101027
  Serious: Yes (Life-Threatening)
  Sender: FDA-Public Use
  Company Number: FR-NOVOPROD-310726

PATIENT
  Age: 31 Year
  Sex: Female

DRUGS (3)
  1. NOVORAPID [Suspect]
     Indication: TYPE 1 DIABETES MELLITUS
     Dosage: 12 IU, QD
     Route: 058
     Dates: end: 20091127
  2. LANTUS [Suspect]
     Dosage: 12 IU, QD
     Route: 058
     Dates: end: 20091127
  3. NEORECORMON [Concomitant]
     Indication: ANAEMIA

REACTIONS (2)
  - HYPOGLYCAEMIC COMA [None]
  - HYPOTHERMIA [None]
